FAERS Safety Report 5755891-9 (Version None)
Quarter: 2008Q2

REPORT INFORMATION
  Report Type: 
  Country: None (occurrence: None)
  Receive Date: 20080528
  Receipt Date: 20080512
  Transmission Date: 20081010
  Serious: Yes (Hospitalization)
  Sender: FDA-Public Use
  Company Number: 1-16167401/MED-08104

PATIENT
  Age: 49 Year
  Sex: Male

DRUGS (1)
  1. BACTRIM [Suspect]
     Indication: ANTIFUNGAL PROPHYLAXIS
     Dosage: ORAL
     Route: 048

REACTIONS (4)
  - ANGLE CLOSURE GLAUCOMA [None]
  - ATROPHY OF GLOBE [None]
  - CATARACT [None]
  - CHOROIDAL EFFUSION [None]
